FAERS Safety Report 9641776 (Version 1)
Quarter: 2013Q4

REPORT INFORMATION
  Report Type: Spontaneous
  Country: US (occurrence: US)
  Receive Date: 20131023
  Receipt Date: 20131023
  Transmission Date: 20140711
  Serious: No
  Sender: FDA-Public Use
  Company Number: US-009507513-1310USA010615

PATIENT
  Age: 41 Year
  Sex: Male

DRUGS (4)
  1. CLARITIN LIQUIGELS [Suspect]
     Indication: HYPERSENSITIVITY
     Dosage: UNK, UNKNOWN
     Route: 048
  2. CLARITIN LIQUIGELS [Suspect]
     Indication: EYE PRURITUS
  3. CLARITIN LIQUIGELS [Suspect]
     Indication: RHINORRHOEA
  4. CLARITIN LIQUIGELS [Suspect]
     Indication: SNEEZING

REACTIONS (1)
  - Drug effect decreased [Unknown]
